FAERS Safety Report 6673095-2 (Version None)
Quarter: 2010Q2

REPORT INFORMATION
  Report Type: 
  Country: None (occurrence: None)
  Receive Date: 20100408
  Receipt Date: 20100405
  Transmission Date: 20101027
  Serious: Yes (Death, Hospitalization, Other)
  Sender: FDA-Public Use
  Company Number: PHEH2007US12080

PATIENT
  Sex: Male

DRUGS (33)
  1. ZOMETA [Suspect]
     Indication: METASTASES TO BONE
     Dosage: 4 MG, QMO
     Dates: start: 20030401
  2. MEDROL [Concomitant]
     Dosage: UNK
  3. AMARYL [Concomitant]
     Dosage: 4 MG / DAILY
  4. GLUCOPHAGE [Concomitant]
     Dosage: 500 MG / TID
  5. LITHIUM [Concomitant]
     Dosage: 300 MG / TID
  6. ATIVAN [Concomitant]
     Dosage: UNK
     Route: 048
  7. PROZAC [Concomitant]
     Dosage: UNK
  8. EFFEXOR [Concomitant]
  9. MS CONTIN [Concomitant]
  10. HYDROCODONE BITARTRATE [Concomitant]
  11. MORPHINE SULFATE [Concomitant]
  12. VALIUM [Concomitant]
  13. CIPROFLOXACIN [Concomitant]
  14. NILANDRON [Concomitant]
  15. PENICILLIN VK [Concomitant]
  16. KADIAN ^KNOLL^ [Concomitant]
  17. TYLENOL-500 [Concomitant]
  18. IBUPROFEN [Concomitant]
  19. VICODIN [Concomitant]
  20. LANTUS [Concomitant]
  21. OXYCODONE [Concomitant]
  22. CLINDAMYCIN [Concomitant]
  23. PERIDEX [Concomitant]
  24. ELAVIL [Concomitant]
  25. FLOMAX [Concomitant]
  26. ALBUTEROL [Concomitant]
  27. RADIATION THERAPY [Concomitant]
  28. HUMALOG [Concomitant]
  29. ZOLADEX [Concomitant]
  30. KETOCONAZOLE [Concomitant]
  31. HYDROCORTISONE [Concomitant]
  32. CASODEX [Concomitant]
  33. FLEXERIL [Concomitant]

REACTIONS (67)
  - ABDOMINAL PAIN [None]
  - ABSCESS JAW [None]
  - ALCOHOL ABUSE [None]
  - ALCOHOL DETOXIFICATION [None]
  - ANHEDONIA [None]
  - ANXIETY [None]
  - ARTERIOSCLEROSIS [None]
  - BACK PAIN [None]
  - BIPOLAR DISORDER [None]
  - BONE SWELLING [None]
  - CARDIAC FAILURE CONGESTIVE [None]
  - CHEST PAIN [None]
  - CHILLS [None]
  - CONSTIPATION [None]
  - CONVULSION [None]
  - COUGH [None]
  - CYANOSIS [None]
  - DEATH [None]
  - DEFORMITY [None]
  - DEPRESSED LEVEL OF CONSCIOUSNESS [None]
  - DEPRESSION [None]
  - DISCOMFORT [None]
  - DYSKINESIA [None]
  - DYSURIA [None]
  - EMOTIONAL DISTRESS [None]
  - EPISTAXIS [None]
  - FACIAL PALSY [None]
  - FALL [None]
  - FATIGUE [None]
  - FOAMING AT MOUTH [None]
  - HYPOPHAGIA [None]
  - HYPOTENSION [None]
  - HYPOXIA [None]
  - INJURY [None]
  - KNEE OPERATION [None]
  - LOOSE TOOTH [None]
  - MALIGNANT NEOPLASM PROGRESSION [None]
  - METASTASES TO BONE [None]
  - METASTASES TO BONE MARROW [None]
  - METASTASES TO SPINE [None]
  - MUSCLE TIGHTNESS [None]
  - MYALGIA [None]
  - NECK PAIN [None]
  - NEURALGIA [None]
  - OEDEMA PERIPHERAL [None]
  - OSTEOARTHRITIS [None]
  - OSTEONECROSIS [None]
  - OSTEOSARCOMA METASTATIC [None]
  - PAIN [None]
  - PAIN IN JAW [None]
  - PERICARDIAL EFFUSION [None]
  - PLEURISY [None]
  - PULMONARY ARTERIAL PRESSURE INCREASED [None]
  - PULMONARY EMBOLISM [None]
  - PULSE ABSENT [None]
  - PURULENT DISCHARGE [None]
  - PYREXIA [None]
  - RIB FRACTURE [None]
  - RIGHT ATRIAL HYPERTROPHY [None]
  - SINUSITIS [None]
  - SKELETAL INJURY [None]
  - SLEEP APNOEA SYNDROME [None]
  - SPINAL OSTEOARTHRITIS [None]
  - SYNCOPE [None]
  - TOOTH ABSCESS [None]
  - TOOTH EXTRACTION [None]
  - VENTRICULAR HYPERTROPHY [None]
